FAERS Safety Report 21130426 (Version 1)
Quarter: 2022Q3

REPORT INFORMATION
  Report Type: Spontaneous
  Country: FR (occurrence: FR)
  Receive Date: 20220726
  Receipt Date: 20220726
  Transmission Date: 20221026
  Serious: Yes (Other)
  Sender: FDA-Public Use
  Company Number: None

PATIENT
  Age: 57 Year
  Sex: Female
  Weight: 74 kg

DRUGS (2)
  1. RIFAMPIN [Suspect]
     Active Substance: RIFAMPIN
     Indication: Lymph node tuberculosis
     Dosage: 7.5ML PER DAY
     Route: 048
     Dates: start: 20220103, end: 20220208
  2. RIFATER [Suspect]
     Active Substance: ISONIAZID\PYRAZINAMIDE\RIFAMPIN
     Indication: Lymph node tuberculosis
     Dosage: 5 TABLETS ONCE A DAY
     Route: 048
     Dates: start: 20220103, end: 20220208

REACTIONS (1)
  - Hepatic cytolysis [Recovered/Resolved]
